FAERS Safety Report 6029473-8 (Version None)
Quarter: 2009Q1

REPORT INFORMATION
  Report Type: 
  Country: None (occurrence: None)
  Receive Date: 20090105
  Receipt Date: 20090105
  Transmission Date: 20090719
  Serious: No
  Sender: FDA-Public Use
  Company Number: None

PATIENT
  Sex: Female
  Weight: 70.3075 kg

DRUGS (1)
  1. SIMVASTATIN [Suspect]
     Indication: BLOOD CHOLESTEROL
     Dosage: 10 MG ONCE DAILY PO
     Route: 048
     Dates: start: 20080201, end: 20081231

REACTIONS (2)
  - BACK PAIN [None]
  - PAIN IN EXTREMITY [None]
